FAERS Safety Report 24234155 (Version 1)
Quarter: 2024Q3

REPORT INFORMATION
  Report Type: Spontaneous
  Country: US (occurrence: US)
  Receive Date: 20240821
  Receipt Date: 20240821
  Transmission Date: 20241017
  Serious: No
  Sender: ROCHE
  Company Number: US-ROCHE-10000056811

PATIENT
  Age: 9 Month
  Sex: Male

DRUGS (1)
  1. EVRYSDI [Suspect]
     Active Substance: RISDIPLAM
     Indication: Spinal muscular atrophy
     Route: 048
     Dates: start: 20231101

REACTIONS (2)
  - Weight decreased [Not Recovered/Not Resolved]
  - Ear infection [Not Recovered/Not Resolved]
